FAERS Safety Report 8423887-4 (Version None)
Quarter: 2012Q2

REPORT INFORMATION
  Report Type: 
  Country: None (occurrence: None)
  Receive Date: 20120608
  Receipt Date: 20110819
  Transmission Date: 20120825
  Serious: No
  Sender: FDA-Public Use
  Company Number: US-ASTRAZENECA-2011SE46665

PATIENT
  Age: 68 Year
  Sex: Female

DRUGS (1)
  1. ATACAND [Suspect]
     Route: 048

REACTIONS (6)
  - HYPERTENSION [None]
  - DRUG DOSE OMISSION [None]
  - SWELLING [None]
  - RHINORRHOEA [None]
  - NASAL INFLAMMATION [None]
  - SINUSITIS [None]
